FAERS Safety Report 11921324 (Version 4)
Quarter: 2016Q2

REPORT INFORMATION
  Report Type: Report from Study
  Country: BR (occurrence: BR)
  Receive Date: 20160115
  Receipt Date: 20160516
  Transmission Date: 20160815
  Serious: Yes (Hospitalization, Other)
  Sender: FDA-Public Use
  Company Number: BR-ABBVIE-16K-020-1537611-00

PATIENT
  Age: 56 Year
  Sex: Female
  Weight: 47 kg

DRUGS (4)
  1. HUMIRA [Suspect]
     Active Substance: ADALIMUMAB
     Route: 058
  2. HUMIRA [Suspect]
     Active Substance: ADALIMUMAB
     Indication: RHEUMATOID ARTHRITIS
     Route: 058
     Dates: start: 20150601, end: 20151111
  3. CARBAMAZEPINE. [Suspect]
     Active Substance: CARBAMAZEPINE
     Indication: HERPES ZOSTER
  4. CARBAMAZEPINE. [Suspect]
     Active Substance: CARBAMAZEPINE
     Indication: PAIN
     Route: 048
     Dates: start: 201512, end: 20160110

REACTIONS (21)
  - Memory impairment [Not Recovered/Not Resolved]
  - Neck pain [Recovering/Resolving]
  - Oropharyngeal pain [Not Recovered/Not Resolved]
  - Immunodeficiency [Unknown]
  - Joint range of motion decreased [Unknown]
  - Facial paralysis [Recovering/Resolving]
  - Corneal lesion [Not Recovered/Not Resolved]
  - Foaming at mouth [Unknown]
  - Migraine [Recovering/Resolving]
  - Ear pain [Not Recovered/Not Resolved]
  - Arthralgia [Not Recovered/Not Resolved]
  - Drug effect incomplete [Not Recovered/Not Resolved]
  - Hypophagia [Recovered/Resolved]
  - Rash macular [Not Recovered/Not Resolved]
  - Fluid intake reduced [Recovered/Resolved]
  - Eyelid function disorder [Not Recovered/Not Resolved]
  - Facial paresis [Recovering/Resolving]
  - Herpes zoster [Recovering/Resolving]
  - Neuritis [Recovering/Resolving]
  - Foreign body sensation in eyes [Not Recovered/Not Resolved]
  - Dry eye [Not Recovered/Not Resolved]

NARRATIVE: CASE EVENT DATE: 201511
